FAERS Safety Report 14402761 (Version 2)
Quarter: 2019Q1

REPORT INFORMATION
  Report Type: Spontaneous
  Country: US (occurrence: US)
  Receive Date: 20180117
  Receipt Date: 20190227
  Transmission Date: 20190417
  Serious: No
  Sender: FDA-Public Use
  Company Number: US-NOVOPROD-573390

PATIENT
  Age: 73 Year
  Sex: Female

DRUGS (1)
  1. SAXENDA [Suspect]
     Active Substance: LIRAGLUTIDE
     Indication: WEIGHT DECREASED
     Dosage: 3.0 MG, QD
     Route: 058
     Dates: start: 20171025

REACTIONS (5)
  - Decreased appetite [Recovered/Resolved]
  - Injection site erythema [Recovered/Resolved]
  - Weight increased [Recovered/Resolved]
  - Nausea [Recovered/Resolved]
  - Weight loss poor [Recovered/Resolved]

NARRATIVE: CASE EVENT DATE: 201710
